FAERS Safety Report 26190032 (Version 1)
Quarter: 2025Q4

REPORT INFORMATION
  Report Type: Spontaneous
  Country: US (occurrence: US)
  Receive Date: 20251223
  Receipt Date: 20251223
  Transmission Date: 20260118
  Serious: Yes (Hospitalization, Other)
  Sender: DR REDDYS
  Company Number: US-DRL-USA-USA/2025/12/019384

PATIENT
  Age: 37 Year
  Sex: Male

DRUGS (2)
  1. POSACONAZOLE [Suspect]
     Active Substance: POSACONAZOLE
     Indication: Mucormycosis
  2. POSACONAZOLE [Suspect]
     Active Substance: POSACONAZOLE
     Indication: Infectious thyroiditis

REACTIONS (2)
  - Hypokalaemia [Unknown]
  - Hypertension [Unknown]
